FAERS Safety Report 8558941-X (Version None)
Quarter: 2012Q3

REPORT INFORMATION
  Report Type: 
  Country: None (occurrence: None)
  Receive Date: 20120802
  Receipt Date: 20120726
  Transmission Date: 20120928
  Serious: Yes (Death, Life-Threatening, Hospitalization, Other)
  Sender: FDA-Public Use
  Company Number: US-009507513-2012SP014867

PATIENT

DRUGS (10)
  1. RIBAVIRIN [Suspect]
     Indication: HEPATITIS C
     Dosage: 1000 MG, QD
     Route: 048
     Dates: start: 20111107, end: 20120313
  2. GLYBURIDE [Concomitant]
     Indication: DIABETES MELLITUS
     Dosage: 2.5 MG, QD
     Route: 048
  3. METFORMIN HYDROCHLORIDE [Concomitant]
  4. VICTRELIS [Suspect]
     Indication: HEPATITIS C
     Dosage: 800 MG, Q8H
     Route: 048
     Dates: start: 20111205, end: 20120313
  5. EPREX [Concomitant]
     Indication: ANAEMIA
     Dosage: 4000 UNITES
     Route: 058
     Dates: start: 20120223
  6. NADOLOL [Concomitant]
  7. DIAZEPAM [Concomitant]
  8. PEGASYS [Suspect]
     Indication: HEPATITIS C
     Dosage: 180 ?G, QW
     Route: 058
     Dates: start: 20111107, end: 20120313
  9. SPIRONOLACTONE [Concomitant]
  10. LASIX [Concomitant]
     Indication: OEDEMA PERIPHERAL
     Dosage: 20 MG, QD
     Route: 048
     Dates: start: 20120215

REACTIONS (11)
  - RENAL FAILURE [None]
  - LOSS OF CONSCIOUSNESS [None]
  - ANAEMIA [None]
  - PLATELET COUNT DECREASED [None]
  - SEPTIC SHOCK [None]
  - MULTI-ORGAN FAILURE [None]
  - CONFUSIONAL STATE [None]
  - BLOOD GLUCOSE INCREASED [None]
  - ASCITES [None]
  - KETOACIDOSIS [None]
  - HAEMOGLOBIN DECREASED [None]
